FAERS Safety Report 7813745-8 (Version None)
Quarter: 2011Q4

REPORT INFORMATION
  Report Type: 
  Country: None (occurrence: None)
  Receive Date: 20111011
  Receipt Date: 20110929
  Transmission Date: 20120403
  Serious: Yes (Hospitalization, Other)
  Sender: FDA-Public Use
  Company Number: 2009SP016958

PATIENT
  Age: 39 Year
  Sex: Female
  Weight: 113.3993 kg

DRUGS (9)
  1. PREDNISONE [Concomitant]
  2. ATACAND HCT [Concomitant]
  3. NUVARING [Suspect]
     Indication: CONTRACEPTION
     Dosage: QM, VAG
     Route: 067
     Dates: start: 20060801, end: 20061113
  4. DYAZIDE [Concomitant]
  5. CEFADROXIL [Concomitant]
  6. CLARINEX [Concomitant]
  7. FOLIC ACID [Concomitant]
  8. CLOTRIMAZOLE [Concomitant]
  9. METHOTREXATE [Concomitant]

REACTIONS (20)
  - PRESYNCOPE [None]
  - TRICUSPID VALVE INCOMPETENCE [None]
  - TINEA PEDIS [None]
  - ADNEXA UTERI MASS [None]
  - DYSFUNCTIONAL UTERINE BLEEDING [None]
  - LUNG NEOPLASM [None]
  - MITRAL VALVE INCOMPETENCE [None]
  - AMENORRHOEA [None]
  - PELVIC PAIN [None]
  - ENDOMETRIAL HYPERPLASIA [None]
  - SALPINGITIS [None]
  - PULMONARY EMBOLISM [None]
  - CHOLELITHIASIS [None]
  - MENSTRUATION IRREGULAR [None]
  - PULMONARY HYPERTENSION [None]
  - HEPATIC STEATOSIS [None]
  - DEEP VEIN THROMBOSIS [None]
  - PULMONARY VALVE INCOMPETENCE [None]
  - LEFT VENTRICULAR HYPERTROPHY [None]
  - RENAL CYST [None]
